FAERS Safety Report 6991903-2 (Version None)
Quarter: 2010Q3

REPORT INFORMATION
  Report Type: 
  Country: None (occurrence: None)
  Receive Date: 20100917
  Receipt Date: 20100910
  Transmission Date: 20110219
  Serious: Yes (Other)
  Sender: FDA-Public Use
  Company Number: HQWYE884123DEC03

PATIENT
  Sex: Female
  Weight: 49.03 kg

DRUGS (1)
  1. PREMPRO [Suspect]
     Indication: HORMONE REPLACEMENT THERAPY
     Dosage: UNKNOWN/DAILY
     Route: 048

REACTIONS (1)
  - BREAST CANCER METASTATIC [None]
